FAERS Safety Report 7273111-3 (Version None)
Quarter: 2011Q1

REPORT INFORMATION
  Report Type: 
  Country: None (occurrence: None)
  Receive Date: 20110126
  Receipt Date: 20110112
  Transmission Date: 20110831
  Serious: Yes (Hospitalization)
  Sender: FDA-Public Use
  Company Number: DSJ-2011-00556

PATIENT
  Age: 79 Year
  Sex: Female

DRUGS (5)
  1. MAGNESIUM OXIDE (MAGNESIUM OXIDE) (MAGNESIUM OXIDE) [Concomitant]
  2. MUCOSTA (REBAMIPIDE) (REBAMIPIDE) [Concomitant]
  3. OLMETEC (OLMESARTAN MEDOXOMIL) (TABLET) (OLMESARTAN MEDOXOMIL) [Suspect]
     Indication: HYPERTENSION
     Dosage: 20 MG,PER ORAL
     Route: 048
     Dates: start: 20101203, end: 20101224
  4. LAC-B (LACTOBACILLUS BIFIDUS, LYOPHILIZED) (LACTOBACILLUS BIFIDUS, LYO [Concomitant]
  5. GASMOTIN (MOSAPRIDE CITRATE) (MOSAPRIDE CITRATE) [Concomitant]

REACTIONS (2)
  - LIVER DISORDER [None]
  - JAUNDICE [None]
